FAERS Safety Report 8309322-5 (Version None)
Quarter: 2012Q2

REPORT INFORMATION
  Report Type: 
  Country: None (occurrence: None)
  Receive Date: 20120425
  Receipt Date: 20120420
  Transmission Date: 20120825
  Serious: Yes (Death)
  Sender: FDA-Public Use
  Company Number: US-ASTRAZENECA-2012SE25988

PATIENT
  Sex: Male

DRUGS (2)
  1. PULMICORT [Suspect]
     Route: 055
  2. INHALERS [Concomitant]

REACTIONS (1)
  - ASTHMA [None]
